FAERS Safety Report 9324234 (Version 1)
Quarter: 2013Q2

REPORT INFORMATION
  Report Type: Spontaneous
  Country: IT (occurrence: IT)
  Receive Date: 20130603
  Receipt Date: 20130603
  Transmission Date: 20140414
  Serious: Yes (Other)
  Sender: FDA-Public Use
  Company Number: PHHY2013IT055413

PATIENT
  Age: 13 Year
  Sex: Female

DRUGS (1)
  1. METHYLPREDNISOLONE [Suspect]
     Indication: MULTIPLE SCLEROSIS
     Dosage: 5.5 G, UNK
     Route: 042

REACTIONS (9)
  - Cerebral venous thrombosis [Recovering/Resolving]
  - Tension headache [Recovering/Resolving]
  - Vomiting [Recovering/Resolving]
  - Grand mal convulsion [Recovering/Resolving]
  - Venous recanalisation [Recovering/Resolving]
  - White matter lesion [Recovering/Resolving]
  - Diplopia [Recovering/Resolving]
  - Strabismus [Recovering/Resolving]
  - Dizziness [Recovering/Resolving]
